FAERS Safety Report 10835175 (Version 1)
Quarter: 2015Q1

REPORT INFORMATION
  Report Type: Spontaneous
  Country: US (occurrence: US)
  Receive Date: 20150219
  Receipt Date: 20150219
  Transmission Date: 20150721
  Serious: Yes (Life-Threatening, Other)
  Sender: FDA-Public Use
  Company Number: CHPA2015US002247

PATIENT
  Age: 41 Year
  Sex: Female

DRUGS (1)
  1. GAS-X [Suspect]
     Active Substance: DIMETHICONE
     Indication: FLATULENCE
     Dosage: 62.5 MG, ONCE/SINGLE
     Route: 065
     Dates: start: 20150209, end: 20150209

REACTIONS (4)
  - Feeling abnormal [Unknown]
  - Dyspepsia [Unknown]
  - Frequent bowel movements [Unknown]
  - Throat irritation [Unknown]

NARRATIVE: CASE EVENT DATE: 20150209
